FAERS Safety Report 24282891 (Version 2)
Quarter: 2024Q3

REPORT INFORMATION
  Report Type: Report from Study
  Country: US (occurrence: US)
  Receive Date: 20240904
  Receipt Date: 20240918
  Transmission Date: 20241017
  Serious: No
  Sender: MADRIGAL PHARMACEUTICALS
  Company Number: US-MADRIGAL PHARMACEUTICALS, INC-2024REZ1326

PATIENT

DRUGS (5)
  1. REZDIFFRA [Suspect]
     Active Substance: RESMETIROM
     Indication: Non-alcoholic steatohepatitis
     Dosage: 100 MILLIGRAM, QD
     Route: 048
     Dates: start: 202407
  2. JARDIANCE [Concomitant]
     Active Substance: EMPAGLIFLOZIN
  3. ZETIA [Concomitant]
     Active Substance: EZETIMIBE
  4. LEVOTHYROXINE [Concomitant]
     Active Substance: LEVOTHYROXINE\LEVOTHYROXINE SODIUM
  5. METFORMIN [Concomitant]
     Active Substance: METFORMIN HYDROCHLORIDE

REACTIONS (3)
  - Aspartate aminotransferase increased [Unknown]
  - Alanine aminotransferase increased [Unknown]
  - Fatigue [Unknown]

NARRATIVE: CASE EVENT DATE: 20240101
